FAERS Safety Report 13455695 (Version 2)
Quarter: 2017Q2

REPORT INFORMATION
  Report Type: Spontaneous
  Country: US (occurrence: US)
  Receive Date: 20170418
  Receipt Date: 20170424
  Transmission Date: 20170830
  Serious: Yes (Death, Hospitalization)
  Sender: FDA-Public Use
  Company Number: US-ACTELION-A-US2017-152583

PATIENT
  Age: 60 Year
  Sex: Female
  Weight: 45.35 kg

DRUGS (1)
  1. VELETRI [Suspect]
     Active Substance: EPOPROSTENOL
     Indication: PULMONARY HYPERTENSION
     Dosage: 36.66 NG/KG, PER MIN
     Route: 042

REACTIONS (4)
  - Dehydration [Unknown]
  - Internal haemorrhage [Unknown]
  - Post procedural haemorrhage [Unknown]
  - Death [Fatal]

NARRATIVE: CASE EVENT DATE: 20170416
